FAERS Safety Report 8114200-0 (Version None)
Quarter: 2012Q1

REPORT INFORMATION
  Report Type: 
  Country: None (occurrence: None)
  Receive Date: 20120205
  Receipt Date: 20110414
  Transmission Date: 20120608
  Serious: No
  Sender: FDA-Public Use
  Company Number: US-ALLERGAN-1105222US

PATIENT
  Sex: Female

DRUGS (3)
  1. PRED FORTE [Suspect]
     Indication: IRITIS
     Dosage: 1 GTT, Q2HR
     Route: 047
     Dates: start: 20110408, end: 20110411
  2. CYCLOPEGIC [Concomitant]
     Indication: MYDRIASIS
  3. PRED FORTE [Suspect]
     Dosage: UNK
     Dates: start: 20110411

REACTIONS (2)
  - EYE PAIN [None]
  - VISUAL ACUITY REDUCED [None]
